FAERS Safety Report 7794868-9 (Version None)
Quarter: 2011Q4

REPORT INFORMATION
  Report Type: 
  Country: None (occurrence: None)
  Receive Date: 20111004
  Receipt Date: 20110922
  Transmission Date: 20120403
  Serious: Yes (Other)
  Sender: FDA-Public Use
  Company Number: PHHY2011BR85097

PATIENT
  Sex: Male

DRUGS (1)
  1. RITALIN [Suspect]
     Indication: ATTENTION DEFICIT/HYPERACTIVITY DISORDER
     Dosage: 10 MG, UNK
     Route: 048

REACTIONS (13)
  - DECREASED APPETITE [None]
  - THINKING ABNORMAL [None]
  - ANAESTHESIA [None]
  - THIRST [None]
  - ACNE [None]
  - DISTURBANCE IN ATTENTION [None]
  - VIITH NERVE PARALYSIS [None]
  - SLEEP DISORDER [None]
  - TRISMUS [None]
  - MIGRAINE [None]
  - HEADACHE [None]
  - HYPERHIDROSIS [None]
  - ANXIETY [None]
